FAERS Safety Report 9993870 (Version 2)
Quarter: 2014Q1

REPORT INFORMATION
  Report Type: Spontaneous
  Country: US (occurrence: US)
  Receive Date: 20140310
  Receipt Date: 20140310
  Transmission Date: 20141002
  Serious: No
  Sender: FDA-Public Use
  Company Number: US-AMGEN-USASP2013033645

PATIENT
  Age: 57 Year
  Sex: Male
  Weight: 99 kg

DRUGS (8)
  1. SENSIPAR [Suspect]
     Indication: HYPERPARATHYROIDISM SECONDARY
     Dosage: 30 MG, QD
     Route: 048
     Dates: start: 20110725
  2. RENVELA [Concomitant]
     Dosage: 800 UNK, BID
     Route: 048
     Dates: start: 201107
  3. ZEMPLAR [Concomitant]
     Dosage: 4 MUG, 3 TIMES/WK
     Route: 042
     Dates: start: 201111
  4. ERGOCALCIFEROL [Concomitant]
     Dosage: 50000 IU, Q9MO
     Route: 048
     Dates: start: 201207
  5. AMBIEN [Concomitant]
     Dosage: 10 MG, QD
     Route: 048
     Dates: start: 201011
  6. NORVASC [Concomitant]
     Dosage: 10 MG, QD
     Route: 048
     Dates: start: 201211
  7. COUMADIN                           /00014802/ [Concomitant]
     Dosage: 0 MG, QD
     Route: 048
     Dates: start: 201212
  8. PRINIVIL [Concomitant]
     Dosage: 40 MG, QD
     Route: 048
     Dates: start: 201012

REACTIONS (7)
  - Swelling face [Unknown]
  - Eye swelling [Unknown]
  - Nasal disorder [Unknown]
  - Pruritus [Unknown]
  - Local swelling [Unknown]
  - Hypersensitivity [Unknown]
  - Urticaria [Recovered/Resolved]
